APPROVED DRUG PRODUCT: BUPROPION HYDROCHLORIDE
Active Ingredient: BUPROPION HYDROCHLORIDE
Strength: 200MG
Dosage Form/Route: TABLET, EXTENDED RELEASE;ORAL
Application: A077455 | Product #003
Applicant: WATSON LABORATORIES INC
Approved: Jul 19, 2010 | RLD: No | RS: No | Type: DISCN